FAERS Safety Report 21561642 (Version 3)
Quarter: 2022Q4

REPORT INFORMATION
  Report Type: Spontaneous
  Country: DK (occurrence: DK)
  Receive Date: 20221107
  Receipt Date: 20221126
  Transmission Date: 20230112
  Serious: Yes (Hospitalization)
  Sender: FDA-Public Use
  Company Number: DK-TEVA-2022-DK-2822679

PATIENT
  Age: 39 Year
  Sex: Female

DRUGS (3)
  1. MOXIFLOXACIN [Suspect]
     Active Substance: MOXIFLOXACIN
     Indication: Central nervous system abscess
     Dosage: 400 MILLIGRAM DAILY;
     Route: 048
  2. CARBOPLATIN [Suspect]
     Active Substance: CARBOPLATIN
     Indication: Non-small cell lung cancer
     Route: 065
  3. VINORELBINE [Suspect]
     Active Substance: VINORELBINE TARTRATE
     Indication: Non-small cell lung cancer
     Route: 065

REACTIONS (4)
  - Malaise [Unknown]
  - Pyrexia [Recovered/Resolved]
  - Depressed level of consciousness [Unknown]
  - Hepatic enzyme increased [Unknown]
